FAERS Safety Report 10738303 (Version 2)
Quarter: 2015Q1

REPORT INFORMATION
  Report Type: Spontaneous
  Country: US (occurrence: US)
  Receive Date: 20150126
  Receipt Date: 20150223
  Transmission Date: 20150721
  Serious: Yes (Other)
  Sender: FDA-Public Use
  Company Number: US-CELGENEUS-163-21880-14085951

PATIENT
  Age: 55 Year
  Sex: Male

DRUGS (1)
  1. REVLIMID [Suspect]
     Active Substance: LENALIDOMIDE
     Indication: PLASMA CELL MYELOMA
     Dosage: 10 MILLIGRAM
     Route: 048
     Dates: start: 20140530

REACTIONS (8)
  - Nephropathy [Unknown]
  - Rash [Unknown]
  - Asthenia [Unknown]
  - Diarrhoea [Unknown]
  - Muscle spasms [Unknown]
  - Muscle spasms [Recovered/Resolved]
  - Skin discolouration [Unknown]
  - Dry skin [Unknown]

NARRATIVE: CASE EVENT DATE: 2014
